FAERS Safety Report 8265483-8 (Version None)
Quarter: 2012Q2

REPORT INFORMATION
  Report Type: 
  Country: None (occurrence: None)
  Receive Date: 20120403
  Receipt Date: 20120327
  Transmission Date: 20120825
  Serious: Yes (Other)
  Sender: FDA-Public Use
  Company Number: ADR-2012-00327

PATIENT
  Age: 49 Year
  Sex: Male

DRUGS (1)
  1. LIORESAL [Suspect]
     Dosage: SEE B5

REACTIONS (12)
  - MUSCLE SPASTICITY [None]
  - DEVICE DAMAGE [None]
  - BLOOD SODIUM DECREASED [None]
  - IMPLANT SITE INFECTION [None]
  - IMPLANT SITE FIBROSIS [None]
  - DEVICE BREAKAGE [None]
  - MEDICAL DEVICE COMPLICATION [None]
  - HYPOTONIA [None]
  - BLOOD CREATINE PHOSPHOKINASE INCREASED [None]
  - FOREIGN BODY REACTION [None]
  - IMPLANT SITE IRRITATION [None]
  - PROCEDURAL COMPLICATION [None]
